FAERS Safety Report 11130214 (Version 1)
Quarter: 2015Q2

REPORT INFORMATION
  Report Type: Spontaneous
  Country: US (occurrence: US)
  Receive Date: 20150522
  Receipt Date: 20150522
  Transmission Date: 20150821
  Serious: No
  Sender: FDA-Public Use
  Company Number: US-009507513-1505USA006204

PATIENT
  Age: 28 Year
  Sex: Female

DRUGS (1)
  1. RAGWITEK [Suspect]
     Active Substance: AMBROSIA ARTEMISIIFOLIA POLLEN
     Indication: HYPERSENSITIVITY
     Dosage: STRENGTH REPORTED AS 12 AMB A1-U ONE TABLET ONCE DAILY
     Route: 060
     Dates: start: 20150502

REACTIONS (3)
  - Pain [Recovered/Resolved]
  - Pruritus [Recovered/Resolved]
  - Swollen tongue [Recovered/Resolved]

NARRATIVE: CASE EVENT DATE: 20150512
